FAERS Safety Report 18070150 (Version 1)
Quarter: 2020Q3

REPORT INFORMATION
  Report Type: Spontaneous
  Country: US (occurrence: US)
  Receive Date: 20200727
  Receipt Date: 20200727
  Transmission Date: 20201103
  Serious: Yes (Death, Hospitalization, Other)
  Sender: FDA-Public Use
  Company Number: US-AMGEN-USASP2020118769

PATIENT

DRUGS (16)
  1. DEXAMETHASONE. [Concomitant]
     Active Substance: DEXAMETHASONE
     Dosage: 40 MILLIGRAM (30 MIN BEFORE CHEMOTHERAPY FROM DAYS FOUR TO SEVEN)
     Route: 042
  2. BORTEZOMIB. [Concomitant]
     Active Substance: BORTEZOMIB
     Dosage: 1 MILLIGRAM/SQ. METER (ONE, FOUR, EIGHT AND 11)
     Route: 058
  3. PEGFILGRASTIM [Suspect]
     Active Substance: PEGFILGRASTIM
     Indication: PRODUCT USED FOR UNKNOWN INDICATION
     Dosage: 6 MILLIGRAM
     Route: 058
  4. ACETAMINOPHEN. [Concomitant]
     Active Substance: ACETAMINOPHEN
     Dosage: 650 MILLIGRAM
     Route: 048
  5. CYCLOPHOSPHAMIDE. [Concomitant]
     Active Substance: CYCLOPHOSPHAMIDE
     Dosage: 400 MILLIGRAM/SQ. METER (MIXED IN 1000 ML NORMAL SALINE FROM DAYS FOUR TO SEVEN)
  6. DIPHENHYDRAMINE. [Concomitant]
     Active Substance: DIPHENHYDRAMINE
     Dosage: 25 MILLIGRAM
     Route: 048
  7. ONDANSETRON [Concomitant]
     Active Substance: ONDANSETRON
     Indication: PROPHYLAXIS
     Dosage: 16 MILLIGRAM (ON DAYS FOUR TO SEVEN BEFORE CHEMOTHERAPY)
     Route: 042
  8. FILGRASTIM [Suspect]
     Active Substance: FILGRASTIM
     Indication: HAEMATOPOIETIC STEM CELL MOBILISATION
     Dosage: 10 MICROGRAM/KILOGRAM
     Route: 058
  9. PLERIXAFOR [Concomitant]
     Active Substance: PLERIXAFOR
     Indication: HAEMATOPOIETIC STEM CELL MOBILISATION
     Dosage: UNK
  10. CISPLATIN. [Concomitant]
     Active Substance: CISPLATIN
     Dosage: 10 MILLIGRAM/SQ. METER, QD (DAILY 24?H CONTINUOUS INFUSION)
     Route: 042
  11. CARFILZOMIB [Suspect]
     Active Substance: CARFILZOMIB
     Indication: PLASMA CELL MYELOMA
     Route: 065
  12. ENOXAPARIN [Concomitant]
     Active Substance: ENOXAPARIN
     Indication: THROMBOSIS PROPHYLAXIS
     Dosage: 40 MILLIGRAM, QD
     Route: 058
  13. LENALIDOMIDE [Concomitant]
     Active Substance: LENALIDOMIDE
     Dosage: 25 MILLIGRAM (ON DAY FOUR TO SEVEN)
     Route: 048
  14. ETOPOSIDE. [Concomitant]
     Active Substance: ETOPOSIDE
     Dosage: 40 MILLIGRAM/SQ. METER
  15. ACYCLOVIR [ACICLOVIR] [Concomitant]
     Active Substance: ACYCLOVIR
     Indication: PROPHYLAXIS
     Dosage: 400 MILLIGRAM, BID
     Route: 048
  16. ASPIRIN [ACETYLSALICYLIC ACID] [Concomitant]
     Active Substance: ASPIRIN
     Indication: THROMBOSIS PROPHYLAXIS
     Dosage: 81 MILLIGRAM, QD

REACTIONS (12)
  - Renal failure [Unknown]
  - Diarrhoea [Unknown]
  - Therapy partial responder [Unknown]
  - Death [Fatal]
  - Thrombocytopenia [Unknown]
  - Pyrexia [Unknown]
  - Febrile neutropenia [Unknown]
  - Nausea [Unknown]
  - Neutropenia [Unknown]
  - Hyponatraemia [Unknown]
  - Unevaluable event [Unknown]
  - Rash [Unknown]
